FAERS Safety Report 18479497 (Version 1)
Quarter: 2020Q4

REPORT INFORMATION
  Report Type: Report from Study
  Country: BR (occurrence: BR)
  Receive Date: 20201109
  Receipt Date: 20201109
  Transmission Date: 20210114
  Serious: Yes (Other)
  Sender: FDA-Public Use
  Company Number: NVSC2020BR293244

PATIENT
  Age: 44 Year
  Sex: Male

DRUGS (1)
  1. COSENTYX [Suspect]
     Active Substance: SECUKINUMAB
     Indication: PSORIATIC ARTHROPATHY
     Dosage: 300 MG
     Route: 065
     Dates: start: 20200705

REACTIONS (10)
  - Pyrexia [Recovered/Resolved]
  - Malaise [Unknown]
  - Limb injury [Recovering/Resolving]
  - Gait inability [Recovering/Resolving]
  - Sepsis [Recovered/Resolved]
  - Pruritus [Not Recovered/Not Resolved]
  - Nail disorder [Recovering/Resolving]
  - Psoriasis [Unknown]
  - Blister infected [Not Recovered/Not Resolved]
  - Skin odour abnormal [Recovering/Resolving]

NARRATIVE: CASE EVENT DATE: 202008
